FAERS Safety Report 21028169 (Version 3)
Quarter: 2022Q3

REPORT INFORMATION
  Report Type: Spontaneous
  Country: US (occurrence: None)
  Receive Date: 20220630
  Receipt Date: 20220825
  Transmission Date: 20221027
  Serious: Yes (Other)
  Sender: FDA-Public Use
  Company Number: US-Merck Healthcare KGaA-9332710

PATIENT
  Age: 40 Year
  Sex: Female

DRUGS (1)
  1. MAVENCLAD [Suspect]
     Active Substance: CLADRIBINE
     Indication: Multiple sclerosis

REACTIONS (14)
  - Blindness [Unknown]
  - Hypokinesia [Recovering/Resolving]
  - Joint stiffness [Unknown]
  - Muscular weakness [Unknown]
  - Vision blurred [Unknown]
  - Diplopia [Unknown]
  - Nystagmus [Unknown]
  - Eye pain [Unknown]
  - Dizziness [Unknown]
  - Vertigo [Unknown]
  - Balance disorder [Unknown]
  - Bladder disorder [Unknown]
  - Mood swings [Unknown]
  - Irritability [Unknown]
